FAERS Safety Report 17433376 (Version 2)
Quarter: 2020Q1

REPORT INFORMATION
  Report Type: Report from Study
  Country: None (occurrence: DK)
  Receive Date: 20200219
  Receipt Date: 20200305
  Transmission Date: 20200409
  Serious: Yes (Death, Other)
  Sender: FDA-Public Use
  Company Number: DK-ABBVIE-20P-044-3280953-00

PATIENT
  Sex: Male

DRUGS (2)
  1. CYPROTERONE ACETATE [Suspect]
     Active Substance: CYPROTERONE ACETATE
     Indication: ANTIANDROGEN THERAPY
     Dosage: 300 MILLIGRAM
     Route: 065
     Dates: start: 1990
  2. LEUPRORELIN ACETATE [Suspect]
     Active Substance: LEUPROLIDE ACETATE
     Indication: ANTIANDROGEN THERAPY
     Dosage: 11.25 MICROGRAM
     Route: 065
     Dates: start: 1990

REACTIONS (1)
  - Acute myocardial infarction [Fatal]

NARRATIVE: CASE EVENT DATE: 1990
